FAERS Safety Report 15306970 (Version 1)
Quarter: 2018Q3

REPORT INFORMATION
  Report Type: Report from Study
  Country: CA (occurrence: CA)
  Receive Date: 20180822
  Receipt Date: 20180822
  Transmission Date: 20181010
  Serious: Yes (Other)
  Sender: FDA-Public Use
  Company Number: CA-PFIZER INC-2018333339

PATIENT
  Age: 49 Year
  Sex: Male
  Weight: 92 kg

DRUGS (8)
  1. METHYLPREDNISOLONE SODIUM SUCCINATE. [Suspect]
     Active Substance: METHYLPREDNISOLONE SODIUM SUCCINATE
     Indication: MULTIPLE SCLEROSIS
     Dosage: 1 G, 1X/DAY
     Route: 042
  2. ALEMTUZUMAB [Suspect]
     Active Substance: ALEMTUZUMAB
     Indication: RELAPSING-REMITTING MULTIPLE SCLEROSIS
     Dosage: 12 MG, 1X/DAY
     Route: 041
  3. ACETAMINOPHEN. [Concomitant]
     Active Substance: ACETAMINOPHEN
     Indication: PREMEDICATION
     Dosage: 975 MG, UNK
     Route: 048
  4. DIPHENHYDRAMINE. [Concomitant]
     Active Substance: DIPHENHYDRAMINE
     Indication: PREMEDICATION
     Dosage: 50 MG, UNK
     Route: 048
  5. ALEMTUZUMAB [Suspect]
     Active Substance: ALEMTUZUMAB
     Dosage: 12 MG, 1X/DAY
     Route: 041
  6. DIMENHYDRINATE. [Concomitant]
     Active Substance: DIMENHYDRINATE
     Indication: PREMEDICATION
     Dosage: 50 MG, UNK
     Route: 048
  7. ACICLOVIR [Suspect]
     Active Substance: ACYCLOVIR
     Indication: ANTIVIRAL TREATMENT
     Dosage: 200 MG, 2X/DAY
     Route: 048
  8. RANITIDINE. [Concomitant]
     Active Substance: RANITIDINE
     Indication: PREMEDICATION
     Dosage: 150 MG, 2X/DAY
     Route: 048

REACTIONS (19)
  - Insomnia [Recovered/Resolved]
  - Gait disturbance [Recovered/Resolved]
  - Haemoglobin decreased [Recovered/Resolved]
  - Lymphocyte count decreased [Recovered/Resolved]
  - Multiple sclerosis relapse [Recovered/Resolved]
  - Pain [Recovered/Resolved]
  - Specific gravity urine decreased [Recovered/Resolved]
  - Ill-defined disorder [Recovered/Resolved]
  - Nasopharyngitis [Recovered/Resolved]
  - Erythema [Recovered/Resolved]
  - Muscle spasms [Recovered/Resolved]
  - Musculoskeletal stiffness [Recovered/Resolved]
  - Red blood cell count decreased [Recovered/Resolved]
  - Herpes zoster [Recovered/Resolved]
  - Lymphocyte percentage decreased [Recovered/Resolved]
  - Neutrophil percentage increased [Recovered/Resolved]
  - Gastric disorder [Recovered/Resolved]
  - Palpitations [Recovered/Resolved]
  - Haematocrit decreased [Recovered/Resolved]
